FAERS Safety Report 6083928-9 (Version None)
Quarter: 2009Q1

REPORT INFORMATION
  Report Type: 
  Country: None (occurrence: None)
  Receive Date: 20090219
  Receipt Date: 20090211
  Transmission Date: 20090719
  Serious: Yes (Other)
  Sender: FDA-Public Use
  Company Number: B0560261A

PATIENT
  Sex: Male

DRUGS (1)
  1. NIQUITIN [Suspect]
     Indication: DRUG USE FOR UNKNOWN INDICATION
     Route: 062

REACTIONS (3)
  - DRUG ABUSE [None]
  - DRUG INEFFECTIVE [None]
  - PRODUCT QUALITY ISSUE [None]
